FAERS Safety Report 9934666 (Version 4)
Quarter: 2014Q2

REPORT INFORMATION
  Report Type: Spontaneous
  Country: BR (occurrence: BR)
  Receive Date: 20140228
  Receipt Date: 20140418
  Transmission Date: 20141212
  Serious: Yes (Other)
  Sender: FDA-Public Use
  Company Number: BR-ALLERGAN-1403276US

PATIENT
  Age: 73 Year
  Sex: Male

DRUGS (1)
  1. LASTACAFT [Suspect]
     Indication: EYE PRURITUS
     Dosage: UNK
     Route: 047
     Dates: start: 20140217, end: 20140217

REACTIONS (8)
  - Corneal lesion [Recovering/Resolving]
  - Visual impairment [Recovering/Resolving]
  - Foreign body sensation in eyes [Recovering/Resolving]
  - Vision blurred [Recovered/Resolved]
  - Intentional product misuse [Unknown]
  - Eye pain [Recovered/Resolved]
  - Eye irritation [Recovering/Resolving]
  - Ocular hyperaemia [Recovered/Resolved]
